FAERS Safety Report 7352539-7 (Version None)
Quarter: 2011Q1

REPORT INFORMATION
  Report Type: 
  Country: None (occurrence: None)
  Receive Date: 20110315
  Receipt Date: 20110311
  Transmission Date: 20110831
  Serious: Yes (Hospitalization, Other)
  Sender: FDA-Public Use
  Company Number: BR-ABBOTT-09P-020-0604740-00

PATIENT
  Sex: Female
  Weight: 63 kg

DRUGS (8)
  1. HUMIRA [Suspect]
     Indication: RHEUMATOID ARTHRITIS
     Route: 058
     Dates: start: 20081101, end: 20091001
  2. LOSARTAN POTASSIUM [Concomitant]
     Indication: BLOOD PRESSURE
     Route: 048
  3. IBUPROFEN [Concomitant]
     Indication: RHEUMATOID ARTHRITIS
     Route: 048
  4. FOLIC ACID [Concomitant]
     Indication: ANAEMIA PROPHYLAXIS
  5. METHOTREXATE [Concomitant]
     Indication: RHEUMATOID ARTHRITIS
     Route: 048
     Dates: start: 20040101
  6. HUMIRA [Suspect]
     Dates: end: 20100101
  7. CELEBREX [Concomitant]
     Indication: RHEUMATOID ARTHRITIS
     Route: 048
  8. NIMESULIDA [Concomitant]
     Indication: RHEUMATOID ARTHRITIS
     Route: 048

REACTIONS (15)
  - TUBERCULOSIS [None]
  - COUGH [None]
  - BRONCHIOLITIS [None]
  - LUNG INFECTION [None]
  - ORGANISING PNEUMONIA [None]
  - DEAFNESS [None]
  - EAR INFECTION [None]
  - LABYRINTHITIS [None]
  - EAR TUBERCULOSIS [None]
  - PYREXIA [None]
  - SINUSITIS [None]
  - NASOPHARYNGITIS [None]
  - INCREASED UPPER AIRWAY SECRETION [None]
  - PNEUMONIA [None]
  - COMPUTERISED TOMOGRAM ABNORMAL [None]
